FAERS Safety Report 9717604 (Version 1)
Quarter: 2013Q4

REPORT INFORMATION
  Report Type: Spontaneous
  Country: US (occurrence: None)
  Receive Date: 20131125
  Receipt Date: 20131125
  Transmission Date: 20140711
  Serious: Yes (Hospitalization)
  Sender: FDA-Public Use
  Company Number: 2013-US-003328

PATIENT
  Age: 95 Year
  Sex: Female

DRUGS (3)
  1. PRIATT (ZICONOTIDE) INTRATHECAL INFUSION [Suspect]
     Indication: SPINAL PAIN
     Route: 037
  2. FENTANYL (FENTANYL) INJECTION [Suspect]
     Route: 037
  3. BACLOFEN [Suspect]
     Route: 037

REACTIONS (4)
  - Decubitus ulcer [None]
  - Platelet count decreased [None]
  - Mental status changes [None]
  - Device issue [None]
